FAERS Safety Report 17160711 (Version 1)
Quarter: 2019Q4

REPORT INFORMATION
  Report Type: Spontaneous
  Country: US (occurrence: US)
  Receive Date: 20191216
  Receipt Date: 20191216
  Transmission Date: 20200122
  Serious: Yes (Death)
  Sender: FDA-Public Use
  Company Number: US-AMERICAN REGENT INC-2019002773

PATIENT
  Age: 56 Year
  Sex: Female

DRUGS (1)
  1. CLONIDINE HYDROCHLORIDE INJECTION, USP (0730-01) [Suspect]
     Active Substance: CLONIDINE HYDROCHLORIDE
     Indication: PRODUCT USED FOR UNKNOWN INDICATION
     Dosage: UNK
     Route: 065
     Dates: start: 2018, end: 2018

REACTIONS (4)
  - Depressed level of consciousness [Fatal]
  - Coma [Fatal]
  - Toxicity to various agents [Fatal]
  - Bradycardia [Fatal]

NARRATIVE: CASE EVENT DATE: 2018
